FAERS Safety Report 6105426-6 (Version None)
Quarter: 2009Q1

REPORT INFORMATION
  Report Type: 
  Country: None (occurrence: None)
  Receive Date: 20090306
  Receipt Date: 20090306
  Transmission Date: 20090719
  Serious: Yes (Hospitalization, Other)
  Sender: FDA-Public Use
  Company Number: US-PFIZER INC-2008078147

PATIENT
  Sex: Female
  Weight: 58.97 kg

DRUGS (4)
  1. XALATAN [Suspect]
     Indication: GLAUCOMA
     Route: 047
  2. DIGOXIN [Suspect]
     Indication: PALPITATIONS
     Dates: end: 20080901
  3. VITAMINS [Concomitant]
  4. DRUG, UNSPECIFIED [Concomitant]

REACTIONS (2)
  - CARDIAC DISORDER [None]
  - THERAPEUTIC AGENT TOXICITY [None]
